FAERS Safety Report 6171567-0 (Version None)
Quarter: 2009Q2

REPORT INFORMATION
  Report Type: 
  Country: None (occurrence: None)
  Receive Date: 20090424
  Receipt Date: 20090218
  Transmission Date: 20091009
  Serious: No
  Sender: FDA-Public Use
  Company Number: ALL1-2009-00436

PATIENT
  Age: 23 Year
  Sex: Female
  Weight: 190 kg

DRUGS (2)
  1. VYVANSE [Suspect]
     Indication: ATTENTION DEFICIT/HYPERACTIVITY DISORDER
     Dosage: 40 MG, 1X/DAY; QD, ORAL, 50 MG, 1X/DAY;QD, ORAL
     Route: 048
     Dates: start: 20081201, end: 20090101
  2. VYVANSE [Suspect]
     Indication: ATTENTION DEFICIT/HYPERACTIVITY DISORDER
     Dosage: 40 MG, 1X/DAY; QD, ORAL, 50 MG, 1X/DAY;QD, ORAL
     Route: 048
     Dates: start: 20090101

REACTIONS (2)
  - FATIGUE [None]
  - IRRITABILITY [None]
